FAERS Safety Report 19668605 (Version 1)
Quarter: 2021Q3

REPORT INFORMATION
  Report Type: Report from Study
  Country: US (occurrence: US)
  Receive Date: 20210806
  Receipt Date: 20210806
  Transmission Date: 20211014
  Serious: Yes (Life-Threatening)
  Sender: FDA-Public Use
  Company Number: US-GLAXOSMITHKLINE-US2021GSK167100

PATIENT

DRUGS (4)
  1. NIRAPARIB [Suspect]
     Active Substance: NIRAPARIB
     Indication: NEUROENDOCRINE CARCINOMA
  2. DOSTARLIMAB [Suspect]
     Active Substance: DOSTARLIMAB
     Indication: SMALL CELL LUNG CANCER
     Dosage: 500 MG
     Route: 042
     Dates: start: 20210506, end: 20210506
  3. NIRAPARIB [Suspect]
     Active Substance: NIRAPARIB
     Indication: SMALL CELL LUNG CANCER
     Route: 048
  4. DOSTARLIMAB [Suspect]
     Active Substance: DOSTARLIMAB
     Indication: NEUROENDOCRINE CARCINOMA

REACTIONS (2)
  - Platelet count decreased [Unknown]
  - Anaemia [Unknown]

NARRATIVE: CASE EVENT DATE: 20210504
